FAERS Safety Report 9434682 (Version 1)
Quarter: 2013Q3

REPORT INFORMATION
  Report Type: Spontaneous
  Country: US (occurrence: None)
  Receive Date: 20130731
  Receipt Date: 20130731
  Transmission Date: 20140515
  Serious: Yes (Disabling)
  Sender: FDA-Public Use
  Company Number: None

PATIENT
  Age: 41 Year
  Sex: Male
  Weight: 90.72 kg

DRUGS (2)
  1. MEFLOQUINE [Suspect]
     Indication: FOREIGN TRAVEL
     Dosage: 1 TAB A WEEK PO
     Route: 048
     Dates: start: 19930401, end: 19930929
  2. MEFLOQUINE [Suspect]
     Indication: FOREIGN TRAVEL
     Dosage: 1 TAB A WEEK PO
     Route: 048
     Dates: start: 19940801, end: 19941129

REACTIONS (18)
  - Gait disturbance [None]
  - Photophobia [None]
  - Hyperacusis [None]
  - Tinnitus [None]
  - Dizziness [None]
  - Depression [None]
  - Social avoidant behaviour [None]
  - Anger [None]
  - Anxiety [None]
  - Panic attack [None]
  - Memory impairment [None]
  - Frustration [None]
  - Sleep disorder [None]
  - Dysphagia [None]
  - Tremor [None]
  - Tremor [None]
  - Nervousness [None]
  - Dyskinesia [None]
